FAERS Safety Report 9658996 (Version 1)
Quarter: 2013Q4

REPORT INFORMATION
  Report Type: Spontaneous
  Country: US (occurrence: US)
  Receive Date: 20131031
  Receipt Date: 20131031
  Transmission Date: 20140711
  Serious: No
  Sender: FDA-Public Use
  Company Number: US-009507513-1310USA009145

PATIENT
  Sex: 0

DRUGS (1)
  1. EMEND [Suspect]
     Indication: PREMEDICATION
     Route: 042

REACTIONS (1)
  - Extravasation [Unknown]
